FAERS Safety Report 6437817-8 (Version None)
Quarter: 2009Q4

REPORT INFORMATION
  Report Type: 
  Country: None (occurrence: None)
  Receive Date: 20091112
  Receipt Date: 20091103
  Transmission Date: 20100525
  Serious: Yes (Hospitalization)
  Sender: FDA-Public Use
  Company Number: US-BAYER-200935765NA

PATIENT
  Age: 32 Year
  Sex: Female

DRUGS (12)
  1. CAMPATH [Suspect]
     Indication: MULTIPLE SCLEROSIS
     Dosage: TOTAL DAILY DOSE: 12 MG
     Route: 042
     Dates: start: 20090810, end: 20090814
  2. LISINOPRIL [Concomitant]
     Dates: start: 20080501
  3. HYDROCHLOROTHIAZIDE [Concomitant]
     Dates: start: 20080501
  4. ZYRTEC [Concomitant]
     Dates: start: 20070907
  5. BACLOFEN [Concomitant]
     Dates: start: 20090206
  6. YASMIN [Concomitant]
     Dates: start: 20090508
  7. OMEPRAZOLE [Concomitant]
     Dates: start: 20090930
  8. MULTI-VITAMIN [Concomitant]
     Dates: start: 20091001
  9. ONDANSETRON HYDROCHLORIDE [Concomitant]
     Dates: start: 20090930
  10. LECITHIN [Concomitant]
     Dates: start: 20080228
  11. ATIVAN [Concomitant]
     Dates: start: 20090615
  12. ACYCLOVIR SODIUM [Concomitant]
     Dates: start: 20090810

REACTIONS (3)
  - ABDOMINAL PAIN [None]
  - CHOLECYSTITIS [None]
  - TROPONIN INCREASED [None]
